FAERS Safety Report 4432251-4 (Version None)
Quarter: 2004Q3

REPORT INFORMATION
  Report Type: 
  Country: None (occurrence: None)
  Receive Date: 20040825
  Receipt Date: 20040205
  Transmission Date: 20050211
  Serious: Yes (Disabling)
  Sender: FDA-Public Use
  Company Number: US-MERCK-0402USA00721

PATIENT
  Age: 36 Year
  Sex: Male
  Weight: 95 kg

DRUGS (13)
  1. VICODIN [Concomitant]
     Route: 065
  2. NEUROTON [Concomitant]
     Route: 065
  3. GLUCOSAMINE [Concomitant]
     Route: 065
     Dates: start: 20000801
  4. MOTRIN [Concomitant]
     Route: 065
     Dates: start: 20030701
  5. LITHIUM ACETATE [Concomitant]
     Route: 065
     Dates: start: 20020801
  6. ZYPREXA [Concomitant]
     Route: 065
     Dates: start: 20030518
  7. RISPERDAL [Concomitant]
     Route: 048
     Dates: start: 20030518
  8. VIOXX [Suspect]
     Indication: ARTHRITIS
     Route: 048
     Dates: start: 20030101, end: 20030101
  9. VIOXX [Suspect]
     Route: 048
     Dates: start: 20030101, end: 20030101
  10. VIOXX [Suspect]
     Route: 048
     Dates: start: 20020101
  11. VIOXX [Suspect]
     Indication: PAIN
     Route: 048
     Dates: start: 20030101, end: 20030101
  12. VIOXX [Suspect]
     Route: 048
     Dates: start: 20030101, end: 20030101
  13. VIOXX [Suspect]
     Route: 048
     Dates: start: 20020101

REACTIONS (15)
  - ANXIETY [None]
  - ARTHRALGIA [None]
  - BACK PAIN [None]
  - CHONDROMALACIA [None]
  - CONDYLOMA ACUMINATUM [None]
  - DRUG INEFFECTIVE [None]
  - HEART RATE INCREASED [None]
  - HYPOAESTHESIA [None]
  - JOINT INJURY [None]
  - NECK INJURY [None]
  - OVERDOSE [None]
  - POST-TRAUMATIC STRESS DISORDER [None]
  - ROAD TRAFFIC ACCIDENT [None]
  - ROTATOR CUFF SYNDROME [None]
  - SENSORY LOSS [None]
